FAERS Safety Report 9270554 (Version 1)
Quarter: 2013Q2

REPORT INFORMATION
  Report Type: Spontaneous
  Country: JP (occurrence: JP)
  Receive Date: 20130506
  Receipt Date: 20130506
  Transmission Date: 20140414
  Serious: Yes (Other)
  Sender: FDA-Public Use
  Company Number: JP-ROCHE-1218422

PATIENT
  Sex: Female

DRUGS (3)
  1. HERCEPTIN [Suspect]
     Indication: BREAST CANCER
     Dosage: FOUR TIME OF ADMINISTERING SETTLEMENT
     Route: 041
  2. HERCEPTIN [Suspect]
     Indication: BREAST CANCER
     Route: 041
  3. HERCEPTIN [Suspect]
     Indication: BREAST CANCER
     Dosage: NINE TIME OF ADMINISTERING SETTLEMENT
     Route: 041

REACTIONS (2)
  - Pneumonia [Unknown]
  - Organising pneumonia [Unknown]
